FAERS Safety Report 19657162 (Version 1)
Quarter: 2021Q3

REPORT INFORMATION
  Report Type: Spontaneous
  Country: NL (occurrence: DE)
  Receive Date: 20210804
  Receipt Date: 20210804
  Transmission Date: 20211014
  Serious: Yes (Hospitalization)
  Sender: FDA-Public Use
  Company Number: DE-FRESENIUS KABI-FK202107976

PATIENT
  Age: 70 Year
  Sex: Female

DRUGS (6)
  1. PACLITAXEL ALBUMIN [Suspect]
     Active Substance: PACLITAXEL
     Indication: DUCTAL ADENOCARCINOMA OF PANCREAS
     Route: 041
     Dates: end: 20210310
  2. INSULIN GLARGINE [Concomitant]
     Active Substance: INSULIN GLARGINE
     Indication: DIABETES MELLITUS
     Route: 058
     Dates: start: 2010
  3. GEMCITABINE. [Suspect]
     Active Substance: GEMCITABINE
     Route: 041
     Dates: start: 20200625, end: 20210224
  4. GEMCITABINE. [Suspect]
     Active Substance: GEMCITABINE
     Indication: DUCTAL ADENOCARCINOMA OF PANCREAS
     Route: 041
     Dates: start: 20210310
  5. METFORMIN [Concomitant]
     Active Substance: METFORMIN HYDROCHLORIDE
     Indication: DIABETES MELLITUS
     Route: 048
     Dates: start: 2010
  6. PACLITAXEL ALBUMIN [Suspect]
     Active Substance: PACLITAXEL
     Route: 041
     Dates: start: 20200624, end: 20210224

REACTIONS (1)
  - Facial paresis [Recovered/Resolved with Sequelae]

NARRATIVE: CASE EVENT DATE: 20210304
